FAERS Safety Report 26168076 (Version 1)
Quarter: 2025Q4

REPORT INFORMATION
  Report Type: Spontaneous
  Country: EU (occurrence: EU)
  Receive Date: 20251217
  Receipt Date: 20251217
  Transmission Date: 20260117
  Serious: Yes (Death, Hospitalization, Other)
  Sender: AUROBINDO
  Company Number: EU-REGENERON PHARMACEUTICALS, INC.-2025-149168

PATIENT
  Age: 64 Year
  Sex: Male

DRUGS (24)
  1. CARBOPLATIN [Suspect]
     Active Substance: CARBOPLATIN
     Indication: Non-small cell lung cancer
     Dosage: 593 MILLIGRAM, Q3W
     Dates: start: 20231017, end: 20231017
  2. CARBOPLATIN [Suspect]
     Active Substance: CARBOPLATIN
     Dosage: 572 MILLIGRAM, Q3W
     Dates: start: 20231106, end: 20231106
  3. CARBOPLATIN [Suspect]
     Active Substance: CARBOPLATIN
     Dosage: 713 MILLIGRAM, Q3W
     Dates: start: 20231127, end: 20231127
  4. CARBOPLATIN [Suspect]
     Active Substance: CARBOPLATIN
     Dosage: 593 MILLIGRAM, Q3W
  5. PACLITAXEL [Suspect]
     Active Substance: PACLITAXEL
     Indication: Non-small cell lung cancer
     Dosage: 593 MILLIGRAM, Q3W
     Dates: start: 20231017, end: 20231017
  6. PACLITAXEL [Suspect]
     Active Substance: PACLITAXEL
     Dosage: 572 MILLIGRAM, Q3W
     Dates: start: 20231106, end: 20231106
  7. PACLITAXEL [Suspect]
     Active Substance: PACLITAXEL
     Dosage: 713 MILLIGRAM, Q3W
     Dates: start: 20231127, end: 20231127
  8. PACLITAXEL [Suspect]
     Active Substance: PACLITAXEL
     Dosage: 593 MILLIGRAM, Q3W
  9. CEMIPLIMAB [Suspect]
     Active Substance: CEMIPLIMAB
     Indication: Non-small cell lung cancer
     Dosage: 350 MILLIGRAM, Q3W
  10. BECLOMETHASONE DIPROPIONATE [Concomitant]
     Active Substance: BECLOMETHASONE DIPROPIONATE
     Indication: Chronic obstructive pulmonary disease
     Dosage: UNK UNK, TWO TIMES A DAY (2 PUFF, TWICE A DAY )
     Route: 061
     Dates: start: 20230922
  11. CLOMIPRAMINE [Concomitant]
     Active Substance: CLOMIPRAMINE
     Indication: Depression
     Dosage: 150 MILLIGRAM, DAILY
     Route: 061
  12. MIRTAZAPINE [Concomitant]
     Active Substance: MIRTAZAPINE
     Indication: Depression
     Dosage: 60 MILLIGRAM, DAILY
     Route: 061
  13. BEROTEC [Concomitant]
     Active Substance: FENOTEROL HYDROBROMIDE
     Indication: Chronic obstructive pulmonary disease
     Dosage: 100 MICROGRAM, PRN
     Route: 061
  14. CANDESARTAN [Concomitant]
     Active Substance: CANDESARTAN
     Indication: Hypertension
     Dosage: 8 MILLIGRAM, DAILY
     Route: 061
  15. BISOPROLOL [Concomitant]
     Active Substance: BISOPROLOL
     Indication: Hypertension
     Dosage: 10 MILLIGRAM, DAILY
     Route: 061
  16. ASPIRIN [Concomitant]
     Active Substance: ASPIRIN
     Indication: Hypertension
     Dosage: 100 MILLIGRAM, DAILY
     Route: 061
  17. ATORVASTATIN [Concomitant]
     Active Substance: ATORVASTATIN
     Indication: Transient ischaemic attack
     Dosage: 20 MILLIGRAM, DAILY
     Route: 061
  18. DEXAMETHASONE [Concomitant]
     Active Substance: DEXAMETHASONE
     Indication: Product used for unknown indication
     Dosage: 8 MILLIGRAM (8 MG, AFTER PLAN)
     Route: 061
  19. FENTANYL [Concomitant]
     Active Substance: FENTANYL
     Indication: Cancer pain
     Dosage: UNK (50 UG/H, ALL 3 DAYS)
     Route: 048
  20. GABAPENTIN [Concomitant]
     Active Substance: GABAPENTIN
     Indication: Neurolysis
     Dosage: 600 MILLIGRAM, DAILY
     Route: 061
  21. MCP [Concomitant]
     Active Substance: METOCLOPRAMIDE HYDROCHLORIDE
     Indication: Nausea
     Dosage: 10 MILLIGRAM, DAILY
     Route: 061
  22. PANTOPRAZOLE [Concomitant]
     Active Substance: PANTOPRAZOLE
     Indication: Gastritis prophylaxis
     Dosage: 40 MILLIGRAM, DAILY
     Route: 061
  23. ALLOPURINOL [Concomitant]
     Active Substance: ALLOPURINOL
     Indication: Chemotherapy
     Dosage: 100 MILLIGRAM, DAILY
     Route: 061
  24. FORMOTEROL [Concomitant]
     Active Substance: FORMOTEROL
     Indication: Chronic obstructive pulmonary disease
     Dosage: 2 PUFFS,  TWO TIMES A DAY
     Route: 061
     Dates: start: 20230922

REACTIONS (1)
  - Pneumonia [Fatal]

NARRATIVE: CASE EVENT DATE: 20250905
